FAERS Safety Report 23633050 (Version 1)
Quarter: 2024Q1

REPORT INFORMATION
  Report Type: Other
  Country: NL (occurrence: NL)
  Receive Date: 20240314
  Receipt Date: 20240314
  Transmission Date: 20240410
  Serious: Yes (Hospitalization, Other)
  Sender: FDA-Public Use
  Company Number: None

PATIENT

DRUGS (2)
  1. EZETIMIBE [Suspect]
     Active Substance: EZETIMIBE
     Indication: Transient ischaemic attack
     Dosage: 10 MILLIGRAM, OD, 1X PER DAG 10 MG
     Route: 065
     Dates: start: 20240103
  2. CLOPIDOGREL [Suspect]
     Active Substance: CLOPIDOGREL BISULFATE
     Indication: Transient ischaemic attack
     Dosage: 75 MILLIGRAM, QD
     Route: 065
     Dates: start: 20240103, end: 20240201

REACTIONS (2)
  - Intestinal haemorrhage [Recovered/Resolved]
  - Hypertension [Unknown]
